FAERS Safety Report 4449131-0 (Version None)
Quarter: 2004Q3

REPORT INFORMATION
  Report Type: 
  Country: None (occurrence: None)
  Receive Date: 20040909
  Receipt Date: 20040830
  Transmission Date: 20050211
  Serious: Yes (Hospitalization)
  Sender: FDA-Public Use
  Company Number: BDI-006407

PATIENT
  Age: 65 Year
  Sex: Male

DRUGS (4)
  1. ISOVUE-300 [Suspect]
     Indication: ANGIOGRAM
     Dosage: 400 ML ONCE IA
     Route: 014
     Dates: start: 20040824, end: 20040824
  2. ISOVUE-300 [Suspect]
     Indication: INTERMITTENT CLAUDICATION
     Dosage: 400 ML ONCE IA
     Route: 014
     Dates: start: 20040824, end: 20040824
  3. ISOVUE-300 [Suspect]
     Indication: PAIN IN EXTREMITY
     Dosage: 400 ML ONCE IA
     Route: 014
     Dates: start: 20040824, end: 20040824
  4. HEPARIN [Concomitant]

REACTIONS (11)
  - ACUTE PULMONARY OEDEMA [None]
  - BACTERIAL SEPSIS [None]
  - BLOOD PRESSURE ABNORMAL [None]
  - CARDIAC FAILURE CONGESTIVE [None]
  - HAEMATEMESIS [None]
  - HEPATIC NECROSIS [None]
  - MYOCARDIAL INFARCTION [None]
  - OXYGEN SATURATION DECREASED [None]
  - POST PROCEDURAL COMPLICATION [None]
  - PROCEDURAL COMPLICATION [None]
  - WHEEZING [None]
